FAERS Safety Report 5267171-9 (Version None)
Quarter: 2007Q1

REPORT INFORMATION
  Report Type: 
  Country: None (occurrence: None)
  Receive Date: 20070316
  Receipt Date: 20070313
  Transmission Date: 20070707
  Serious: Yes (Disabling, Other)
  Sender: FDA-Public Use
  Company Number: CH-BRISTOL-MYERS SQUIBB COMPANY-13713896

PATIENT
  Age: 53 Year
  Sex: Male

DRUGS (1)
  1. REYATAZ [Suspect]
     Dates: start: 20050422, end: 20060519

REACTIONS (1)
  - WEIGHT INCREASED [None]
